FAERS Safety Report 16176471 (Version 1)
Quarter: 2019Q2

REPORT INFORMATION
  Report Type: Spontaneous
  Country: US (occurrence: US)
  Receive Date: 20190409
  Receipt Date: 20190409
  Transmission Date: 20190711
  Serious: Yes (Hospitalization, Other)
  Sender: FDA-Public Use
  Company Number: US-MYLANLABS-2019M1033637

PATIENT
  Age: 63 Year
  Sex: Female

DRUGS (1)
  1. CISPLATIN. [Suspect]
     Active Substance: CISPLATIN
     Indication: ENDOMETRIAL CANCER STAGE III
     Dosage: COMPLETED NINE CYCLES
     Route: 065

REACTIONS (7)
  - Blood potassium decreased [Recovering/Resolving]
  - Renal tubular dysfunction [Unknown]
  - Resting tremor [Unknown]
  - Hypomagnesaemia [Not Recovered/Not Resolved]
  - Blood calcium decreased [Recovering/Resolving]
  - Blood phosphorus decreased [Recovering/Resolving]
  - Orthostatic hypotension [Unknown]
